FAERS Safety Report 21068037 (Version 1)
Quarter: 2022Q3

REPORT INFORMATION
  Report Type: Spontaneous
  Country: US (occurrence: None)
  Receive Date: 20220712
  Receipt Date: 20220712
  Transmission Date: 20221026
  Serious: Yes (Life-Threatening, Hospitalization, Other)
  Sender: FDA-Public Use
  Company Number: US-Hikma Pharmaceuticals USA Inc.-US-H14001-22-01682

PATIENT
  Age: 28 Year
  Sex: Male
  Weight: 59.5 kg

DRUGS (14)
  1. HYDROCORTISONE [Suspect]
     Active Substance: HYDROCORTISONE
     Indication: Chronic graft versus host disease
     Dosage: 20MG IN AM AND 10MG IN PM
     Route: 048
     Dates: start: 20211124
  2. PREDNISONE [Suspect]
     Active Substance: PREDNISONE
     Indication: Chronic graft versus host disease
     Route: 048
     Dates: start: 20210402, end: 20210420
  3. PREDNISONE [Suspect]
     Active Substance: PREDNISONE
     Route: 048
     Dates: start: 20210421, end: 20210427
  4. PREDNISONE [Suspect]
     Active Substance: PREDNISONE
     Route: 048
     Dates: start: 20210428, end: 20210505
  5. PREDNISONE [Suspect]
     Active Substance: PREDNISONE
     Route: 048
     Dates: start: 20210506, end: 20210511
  6. PREDNISONE [Suspect]
     Active Substance: PREDNISONE
     Route: 048
     Dates: start: 20210512, end: 20210701
  7. PREDNISONE [Suspect]
     Active Substance: PREDNISONE
     Route: 048
     Dates: start: 20210702
  8. ITACITINIB [Suspect]
     Active Substance: ITACITINIB
     Indication: Chronic graft versus host disease
     Route: 048
     Dates: start: 20210405
  9. ITACITINIB [Suspect]
     Active Substance: ITACITINIB
     Dosage: UNKNOWN
     Route: 048
     Dates: start: 20220531
  10. ITACITINIB [Suspect]
     Active Substance: ITACITINIB
     Dosage: UNKNOWN
     Route: 048
     Dates: start: 20220603
  11. SUBOXONE [Concomitant]
     Active Substance: BUPRENORPHINE HYDROCHLORIDE\NALOXONE HYDROCHLORIDE
     Indication: Product used for unknown indication
     Dosage: UNKNOWN
     Route: 065
     Dates: start: 202009
  12. MAGNESIUM OXIDE [Concomitant]
     Active Substance: MAGNESIUM OXIDE
     Indication: Product used for unknown indication
     Dosage: UNKNOWN
     Route: 065
     Dates: start: 202011
  13. PANTOPRAZOLE [Concomitant]
     Active Substance: PANTOPRAZOLE
     Indication: Product used for unknown indication
     Dosage: UNKNOWN
     Route: 065
     Dates: start: 201901
  14. POSACONAZOLE [Concomitant]
     Active Substance: POSACONAZOLE
     Indication: Product used for unknown indication
     Dosage: UNKNOWN
     Route: 065
     Dates: start: 202001

REACTIONS (7)
  - Abdominal pain [Not Recovered/Not Resolved]
  - Lipase increased [Unknown]
  - Pancreatic mass [Unknown]
  - Pancreatitis [Unknown]
  - Hiatus hernia [Unknown]
  - Acute myeloid leukaemia [Unknown]
  - Blast cells absent [Unknown]

NARRATIVE: CASE EVENT DATE: 20220524
